FAERS Safety Report 6437831-2 (Version None)
Quarter: 2009Q4

REPORT INFORMATION
  Report Type: 
  Country: None (occurrence: None)
  Receive Date: 20091112
  Receipt Date: 20091102
  Transmission Date: 20100525
  Serious: Yes (Hospitalization)
  Sender: FDA-Public Use
  Company Number: US-AMGEN-QUU369000

PATIENT
  Sex: Female
  Weight: 65.8 kg

DRUGS (1)
  1. ENBREL [Suspect]
     Indication: RHEUMATOID ARTHRITIS
     Route: 058
     Dates: start: 20051101

REACTIONS (3)
  - BURSITIS [None]
  - FALL [None]
  - SPINAL COMPRESSION FRACTURE [None]
